FAERS Safety Report 9841774 (Version 1)
Quarter: 2013Q4

REPORT INFORMATION
  Report Type: Spontaneous
  Country: US (occurrence: None)
  Receive Date: 20131219
  Receipt Date: 20131219
  Transmission Date: 20140711
  Serious: Yes (Death)
  Sender: FDA-Public Use
  Company Number: 163-20785-12110092

PATIENT
  Age: 74 Year
  Sex: Female

DRUGS (11)
  1. THALOMID [Suspect]
     Indication: PLASMA CELL MYELOMA
     Dosage: 1 IN 1 D
     Route: 048
     Dates: start: 20120726
  2. ACYCLOVIR [Concomitant]
  3. ARANESP [Concomitant]
  4. CALCITRIOL [Concomitant]
  5. CALTRATE 600 + D 600-800 MG [Concomitant]
  6. CYMBALTA [Concomitant]
  7. DEXAMETHASONE [Concomitant]
  8. DOCUSATE SODIUM [Concomitant]
  9. FISH OIL [Concomitant]
  10. FUROSEMIDE [Concomitant]
  11. LACTOSE FAST ACTING [Concomitant]

REACTIONS (1)
  - Death [None]
